FAERS Safety Report 5653092-6 (Version None)
Quarter: 2008Q1

REPORT INFORMATION
  Report Type: 
  Country: None (occurrence: None)
  Receive Date: 20080306
  Receipt Date: 20080227
  Transmission Date: 20080703
  Serious: Yes (Other)
  Sender: FDA-Public Use
  Company Number: PHEH2008US02266

PATIENT
  Age: 8 Year
  Sex: Male

DRUGS (1)
  1. FOCALIN XR [Suspect]
     Indication: ATTENTION DEFICIT/HYPERACTIVITY DISORDER
     Dosage: 10 MG, QD
     Route: 048

REACTIONS (2)
  - DIARRHOEA [None]
  - MEDICATION ERROR [None]
